FAERS Safety Report 5901513-3 (Version None)
Quarter: 2008Q3

REPORT INFORMATION
  Report Type: 
  Country: None (occurrence: None)
  Receive Date: 20080926
  Receipt Date: 20080926
  Transmission Date: 20090109
  Serious: No
  Sender: FDA-Public Use
  Company Number: None

PATIENT
  Sex: Female
  Weight: 62.1428 kg

DRUGS (1)
  1. LIPITOR [Suspect]
     Indication: BLOOD CHOLESTEROL
     Dosage: 20 MG.  1  PO
     Route: 048
     Dates: start: 20020101, end: 20080915

REACTIONS (5)
  - ARTHRALGIA [None]
  - FEAR OF FALLING [None]
  - GAIT DISTURBANCE [None]
  - MUSCULAR WEAKNESS [None]
  - WEIGHT DECREASED [None]
